FAERS Safety Report 8756511 (Version 4)
Quarter: 2013Q1

REPORT INFORMATION
  Report Type: Spontaneous
  Country: US (occurrence: US)
  Receive Date: 20120828
  Receipt Date: 20130124
  Transmission Date: 20140127
  Serious: No
  Sender: FDA-Public Use
  Company Number: US-BIOGENIDEC-2012BI033029

PATIENT
  Age: 46 None
  Sex: Female

DRUGS (8)
  1. TYSABRI [Suspect]
     Indication: MULTIPLE SCLEROSIS
     Route: 042
     Dates: start: 20120711
  2. AVONEX [Concomitant]
     Indication: MULTIPLE SCLEROSIS
     Route: 030
     Dates: start: 20011001
  3. FIORICET [Concomitant]
     Indication: HEADACHE
  4. FIORICET [Concomitant]
     Indication: BACK DISORDER
  5. FIORICET [Concomitant]
     Indication: PAIN
  6. CLONAZEPAM [Concomitant]
     Indication: BIPOLAR DISORDER
  7. DURAGESIC FENTANYL PATCH [Concomitant]
     Indication: PAIN
  8. DURAGESIC FENTANYL PATCH [Concomitant]
     Indication: BACK DISORDER

REACTIONS (17)
  - Memory impairment [Not Recovered/Not Resolved]
  - Aphasia [Not Recovered/Not Resolved]
  - Bipolar disorder [Not Recovered/Not Resolved]
  - Pain [Recovered/Resolved]
  - Abdominal pain upper [Recovered/Resolved]
  - Back pain [Not Recovered/Not Resolved]
  - Application site infection [Recovered/Resolved]
  - Vertigo [Not Recovered/Not Resolved]
  - Weight decreased [Unknown]
  - Thyroid disorder [Not Recovered/Not Resolved]
  - Body temperature increased [Not Recovered/Not Resolved]
  - Multiple sclerosis [Unknown]
  - Urinary tract infection [Recovered/Resolved]
  - Asthenia [Recovered/Resolved]
  - Infection [Recovered/Resolved]
  - Fatigue [Not Recovered/Not Resolved]
  - Vomiting [Recovered/Resolved]
